FAERS Safety Report 16544177 (Version 1)
Quarter: 2019Q3

REPORT INFORMATION
  Report Type: Spontaneous
  Country: US (occurrence: US)
  Receive Date: 20190709
  Receipt Date: 20190709
  Transmission Date: 20191004
  Serious: No
  Sender: FDA-Public Use
  Company Number: US-PFIZER INC-2019292888

PATIENT
  Age: 29 Year
  Sex: Male
  Weight: 122.4 kg

DRUGS (2)
  1. KEPPRA [Interacting]
     Active Substance: LEVETIRACETAM
     Indication: EPILEPSY
     Dosage: UNK
     Dates: start: 2005, end: 2006
  2. DILANTIN [Suspect]
     Active Substance: PHENYTOIN
     Indication: EPILEPSY
     Dosage: UNK
     Route: 048
     Dates: start: 1998

REACTIONS (4)
  - Drug interaction [Unknown]
  - Drug hypersensitivity [Unknown]
  - Aggression [Unknown]
  - Personality change [Unknown]

NARRATIVE: CASE EVENT DATE: 2005
